FAERS Safety Report 8802713 (Version 5)
Quarter: 2012Q4

REPORT INFORMATION
  Report Type: 
  Country: US (occurrence: US)
  Receive Date: 20120921
  Receipt Date: 20121218
  Transmission Date: 20130627
  Serious: Yes (Hospitalization, Other)
  Sender: FDA-Public Use
  Company Number: US-009507513-1201USA00254

PATIENT

DRUGS (4)
  1. FOSAMAX [Suspect]
     Indication: OSTEOPOROSIS
     Dosage: 70 mg, wkly
     Route: 048
     Dates: start: 200510, end: 200810
  2. FOSAMAX PLUS D [Suspect]
     Dosage: 70 mg, UNK
     Route: 048
  3. SPIRIVA [Concomitant]
  4. CALCIUM (UNSPECIFIED) [Concomitant]
     Dosage: UNK, qd
     Dates: start: 2000

REACTIONS (14)
  - Femur fracture [Not Recovered/Not Resolved]
  - Surgery [Unknown]
  - Surgery [Unknown]
  - Impaired healing [Not Recovered/Not Resolved]
  - Anxiety [Unknown]
  - Depression [Unknown]
  - Fracture [Unknown]
  - Upper limb fracture [Unknown]
  - Dental implantation [Unknown]
  - Hypothyroidism [Unknown]
  - Fall [Unknown]
  - Fall [Unknown]
  - Arthritis [Unknown]
  - Adverse event [Unknown]
